FAERS Safety Report 25186506 (Version 2)
Quarter: 2025Q2

REPORT INFORMATION
  Report Type: Spontaneous
  Country: US (occurrence: US)
  Receive Date: 20250411
  Receipt Date: 20250510
  Transmission Date: 20250716
  Serious: Yes (Other)
  Sender: IPSEN BIOPHARMACEUTICALS, INC.
  Company Number: US-IPSEN Group, Research and Development-2025-08124

PATIENT
  Age: 74 Year
  Sex: Female
  Weight: 82 kg

DRUGS (12)
  1. TAZVERIK [Suspect]
     Active Substance: TAZEMETOSTAT HYDROBROMIDE
     Indication: Follicular lymphoma stage I
     Route: 048
     Dates: start: 20250224
  2. ADVIL [Concomitant]
     Active Substance: IBUPROFEN
     Route: 048
  3. HERBALS [Concomitant]
     Active Substance: HERBALS
     Route: 048
  4. KEFLEX [Concomitant]
     Active Substance: CEPHALEXIN
     Route: 048
  5. LEVOTHYROXINE [Concomitant]
     Active Substance: LEVOTHYROXINE
  6. METOPROLOL TARTRATE [Concomitant]
     Active Substance: METOPROLOL TARTRATE
     Route: 048
  7. NIFEDIPINE [Concomitant]
     Active Substance: NIFEDIPINE
  8. OMEPRAZOLE [Concomitant]
     Active Substance: OMEPRAZOLE
     Route: 048
  9. ONDANSETRON [Concomitant]
     Active Substance: ONDANSETRON
  10. VITAMIN D3 [Concomitant]
     Active Substance: CHOLECALCIFEROL
     Route: 048
  11. WELCHOL [Concomitant]
     Active Substance: COLESEVELAM HYDROCHLORIDE
     Route: 048
  12. COLLAGEN [Concomitant]
     Active Substance: COLLAGEN
     Route: 048

REACTIONS (2)
  - Hypothyroidism [Not Recovered/Not Resolved]
  - Palpitations [Not Recovered/Not Resolved]
